FAERS Safety Report 19599701 (Version 4)
Quarter: 2022Q4

REPORT INFORMATION
  Report Type: Report from Study
  Country: US (occurrence: US)
  Receive Date: 20210722
  Receipt Date: 20221110
  Transmission Date: 20230112
  Serious: Yes (Hospitalization)
  Sender: FDA-Public Use
  Company Number: US-BAUSCH-BL-2021-025566

PATIENT
  Age: 63 Year
  Sex: Female

DRUGS (1)
  1. XIFAXAN [Suspect]
     Active Substance: RIFAXIMIN
     Indication: Hepatic cirrhosis
     Route: 048

REACTIONS (7)
  - Hospitalisation [Unknown]
  - Abdominal discomfort [Unknown]
  - Pain [Unknown]
  - Feeling abnormal [Unknown]
  - Fatigue [Unknown]
  - Inability to afford medication [Unknown]
  - Product use issue [Unknown]

NARRATIVE: CASE EVENT DATE: 20210101
